FAERS Safety Report 7450360-2 (Version None)
Quarter: 2011Q2

REPORT INFORMATION
  Report Type: 
  Country: None (occurrence: None)
  Receive Date: 20110422
  Receipt Date: 20110408
  Transmission Date: 20111010
  Serious: Yes (Life-Threatening, Hospitalization, Congenital Anomaly, Other)
  Sender: FDA-Public Use
  Company Number: GER/GER/11/0017966

PATIENT
  Sex: Male
  Weight: 2.76 kg

DRUGS (3)
  1. INSULIN (INSULIN) [Concomitant]
  2. FOLIO FORTE(MAXIPLEX /00992201/) [Concomitant]
  3. OMEPRAZOLE [Suspect]
     Indication: REFLUX OESOPHAGITIS
     Dosage: 20 MG, 1 IN 1 D, TRANSPLACENTAL
     Route: 064
     Dates: start: 20100113, end: 20100415

REACTIONS (10)
  - MATERNAL DRUGS AFFECTING FOETUS [None]
  - ATRIAL SEPTAL DEFECT [None]
  - HAEMANGIOMA CONGENITAL [None]
  - NEONATAL RESPIRATORY DEPRESSION [None]
  - HAEMANGIOMA OF LIVER [None]
  - HYPOTONIA NEONATAL [None]
  - PATENT DUCTUS ARTERIOSUS [None]
  - HYPOGLYCAEMIA NEONATAL [None]
  - THROMBOCYTOPENIA NEONATAL [None]
  - PERSISTENT FOETAL CIRCULATION [None]
